FAERS Safety Report 5195265-5 (Version None)
Quarter: 2006Q4

REPORT INFORMATION
  Report Type: 
  Country: None (occurrence: None)
  Receive Date: 20061229
  Receipt Date: 20061127
  Transmission Date: 20070319
  Serious: Yes (Hospitalization, Other)
  Sender: FDA-Public Use
  Company Number: JP-PFIZER INC-2006145564

PATIENT
  Sex: Female
  Weight: 54.1 kg

DRUGS (5)
  1. SOLU-MEDROL [Suspect]
     Indication: LYMPHOMA
     Dosage: DAILY DOSE:250MG-FREQ:FREQUENCY: QD
     Route: 042
     Dates: start: 20060821, end: 20060825
  2. VEPESID [Suspect]
     Indication: LYMPHOMA
     Dosage: DAILY DOSE:25MG
     Route: 048
     Dates: start: 20051209, end: 20060701
  3. VEPESID [Suspect]
     Dosage: DAILY DOSE:40MG-FREQ:FREQUENCY: QD
     Route: 042
     Dates: start: 20060821, end: 20060824
  4. RANDA [Suspect]
     Indication: LYMPHOMA
     Dosage: DAILY DOSE:25MG-FREQ:FREQUENCY: QD
     Route: 042
     Dates: start: 20060821, end: 20060824
  5. CYTARABINE [Suspect]
     Indication: LYMPHOMA
     Dosage: TEXT:2G-FREQ:FREQUENCY: QD
     Route: 042
     Dates: start: 20060824, end: 20060825

REACTIONS (5)
  - ANAPHYLACTIC SHOCK [None]
  - BONE MARROW FAILURE [None]
  - IMMUNOSUPPRESSION [None]
  - INFECTION [None]
  - SEPTIC SHOCK [None]
